FAERS Safety Report 12320813 (Version 1)
Quarter: 2016Q2

REPORT INFORMATION
  Report Type: Spontaneous
  Country: US (occurrence: US)
  Receive Date: 20160429
  Receipt Date: 20160429
  Transmission Date: 20160815
  Serious: No
  Sender: FDA-Public Use
  Company Number: US-ROCHE-1627055

PATIENT
  Age: 83 Year
  Sex: Female

DRUGS (13)
  1. AVASTIN [Suspect]
     Active Substance: BEVACIZUMAB
     Indication: RENAL CANCER
     Route: 065
     Dates: start: 20150506, end: 20150803
  2. TORISEL [Concomitant]
     Active Substance: TEMSIROLIMUS
     Indication: RENAL CANCER
     Route: 065
     Dates: start: 20140723, end: 20150225
  3. AMIODARONE [Concomitant]
     Active Substance: AMIODARONE
     Dosage: 10 MG
     Route: 048
     Dates: start: 20130227
  4. AVASTIN [Suspect]
     Active Substance: BEVACIZUMAB
     Route: 065
     Dates: start: 20150623, end: 20150813
  5. LATANOPROST. [Concomitant]
     Active Substance: LATANOPROST
     Dosage: 1 DROP IN LEFT EYE
     Route: 065
     Dates: start: 20130130
  6. MEGACE [Concomitant]
     Active Substance: MEGESTROL ACETATE
     Dosage: 40 MG/ML
     Route: 048
     Dates: start: 20150804
  7. ZOFRAN [Concomitant]
     Active Substance: ONDANSETRON HYDROCHLORIDE
     Indication: NAUSEA
     Dosage: 30 TABLETS
     Route: 065
     Dates: start: 20150527
  8. SUNITINIB [Concomitant]
     Active Substance: SUNITINIB
     Indication: RENAL CANCER
     Route: 065
     Dates: start: 20150322, end: 20150415
  9. TIMOLOL. [Concomitant]
     Active Substance: TIMOLOL
     Route: 065
     Dates: start: 20130130
  10. AFINITOR [Concomitant]
     Active Substance: EVEROLIMUS
     Indication: RENAL CANCER
     Route: 065
     Dates: start: 20130304, end: 20130415
  11. ACETAMINOPHEN/HYDROCODONE [Concomitant]
     Active Substance: ACETAMINOPHEN\HYDROCODONE
     Dosage: ACETAMINOPHEN- 325 MG; HYDROCODONE- 5 MG
     Route: 065
     Dates: start: 20150708
  12. METOPROLOL TARTRATE. [Concomitant]
     Active Substance: METOPROLOL TARTRATE
     Dosage: 1/2 TABLET
     Route: 048
     Dates: start: 20130130
  13. SIMVASTATIN. [Concomitant]
     Active Substance: SIMVASTATIN
     Route: 048
     Dates: start: 20130130

REACTIONS (1)
  - Decreased appetite [Unknown]

NARRATIVE: CASE EVENT DATE: 20150814
